FAERS Safety Report 10146942 (Version 1)
Quarter: 2014Q2

REPORT INFORMATION
  Report Type: Report from Study
  Country: US (occurrence: US)
  Receive Date: 20140501
  Receipt Date: 20140501
  Transmission Date: 20141212
  Serious: Yes (Hospitalization)
  Sender: FDA-Public Use
  Company Number: US-TEVA-478163USA

PATIENT
  Age: 51 Year
  Sex: Female

DRUGS (1)
  1. CLOZAPINE [Suspect]
     Indication: SCHIZOPHRENIA
     Route: 048

REACTIONS (4)
  - Mental status changes [Unknown]
  - Hyponatraemia [Unknown]
  - Tachycardia [Unknown]
  - Urinary incontinence [Unknown]
